FAERS Safety Report 24026826 (Version 3)
Quarter: 2024Q3

REPORT INFORMATION
  Report Type: Spontaneous
  Country: GB (occurrence: GB)
  Receive Date: 20240628
  Receipt Date: 20240913
  Transmission Date: 20241017
  Serious: Yes (Other)
  Sender: AUROBINDO
  Company Number: GB-PFIZER INC-202400103397

PATIENT
  Age: 79 Year
  Sex: Female

DRUGS (6)
  1. IRBESARTAN [Suspect]
     Active Substance: IRBESARTAN
     Indication: Blood pressure management
     Dosage: UNK
     Route: 065
  2. COMIRNATY (TOZINAMERAN) [Suspect]
     Active Substance: TOZINAMERAN
     Indication: COVID-19 immunisation
     Dosage: UNK,DOSE NUMBER UNKNOWN, SINGLE
     Route: 065
  3. PRIMIDONE [Suspect]
     Active Substance: PRIMIDONE
     Indication: Epilepsy
     Dosage: 250 MILLIGRAM, TWO TIMES A DAY (500 MILLIGRAM ONCE A DAY)
     Route: 065
  4. LANSOPRAZOLE [Suspect]
     Active Substance: LANSOPRAZOLE
     Indication: Hiatus hernia
     Dosage: UNK
     Route: 065
  5. BECONASE AQ [Concomitant]
     Active Substance: BECLOMETHASONE DIPROPIONATE MONOHYDRATE
     Indication: Maculopathy
     Dosage: UNK
     Route: 065
  6. HYLO TEAR [Concomitant]
     Indication: Maculopathy
     Dosage: UNK
     Route: 065

REACTIONS (3)
  - Sleep apnoea syndrome [Unknown]
  - Fatigue [Unknown]
  - Somnolence [Unknown]
